FAERS Safety Report 4588224-4 (Version None)
Quarter: 2005Q1

REPORT INFORMATION
  Report Type: 
  Country: None (occurrence: None)
  Receive Date: 20050221
  Receipt Date: 20050118
  Transmission Date: 20050727
  Serious: Yes (Hospitalization)
  Sender: FDA-Public Use
  Company Number: US-ROCHE-392678

PATIENT
  Age: 2 Year
  Sex: Female
  Weight: 16.4 kg

DRUGS (21)
  1. DACLIZUMAB [Suspect]
     Route: 065
     Dates: start: 20040630, end: 20040825
  2. TACROLIMUS [Suspect]
     Route: 065
  3. PREDNISONE [Suspect]
     Route: 065
  4. PREDNISONE [Suspect]
     Route: 065
  5. AZATHIOPRINE [Suspect]
     Route: 065
  6. PRILOSEC [Concomitant]
  7. ASPIRIN [Concomitant]
  8. LOMOTIL [Concomitant]
  9. FER-IN-SOL [Concomitant]
  10. PEPCID [Concomitant]
  11. REGLAN [Concomitant]
  12. LACTOBACILLUS [Concomitant]
  13. FLORINEF [Concomitant]
  14. EPOGEN [Concomitant]
  15. IRON NOS [Concomitant]
     Dosage: REPORTED AS ^NEW IRON^
  16. GANCICLOVIR [Concomitant]
     Route: 042
  17. FAMOTIDINE [Concomitant]
     Route: 050
  18. SEPTRA [Concomitant]
     Dosage: GIVEN AT NIGHT
     Route: 050
  19. FERROUS SULFATE TAB [Concomitant]
  20. LASIX [Concomitant]
  21. MAG PLUS [Concomitant]

REACTIONS (14)
  - ASCITES [None]
  - BACTERIAL INFECTION [None]
  - CATHETER RELATED INFECTION [None]
  - CYTOMEGALOVIRUS INFECTION [None]
  - DEHYDRATION [None]
  - ENTEROCOCCAL INFECTION [None]
  - HEPATIC ENZYME INCREASED [None]
  - LOBAR PNEUMONIA [None]
  - LYMPHOCELE [None]
  - PNEUMONIA [None]
  - POSTOPERATIVE WOUND COMPLICATION [None]
  - STAPHYLOCOCCAL INFECTION [None]
  - URINARY TRACT INFECTION [None]
  - WOUND DEHISCENCE [None]
